FAERS Safety Report 8061509-5 (Version None)
Quarter: 2012Q1

REPORT INFORMATION
  Report Type: 
  Country: None (occurrence: None)
  Receive Date: 20120120
  Receipt Date: 20111221
  Transmission Date: 20120608
  Serious: No
  Sender: FDA-Public Use
  Company Number: US-ALLERGAN-1116686US

PATIENT
  Age: 63 Year
  Sex: Female

DRUGS (2)
  1. REFRESH TEARS                      /00007001/ [Concomitant]
     Indication: DRY EYE
     Dosage: 2 GTT, PRN
     Route: 047
  2. RESTASIS [Suspect]
     Indication: DRY EYE
     Dosage: 2 GTT, BID
     Route: 047
     Dates: start: 20111101, end: 20111219

REACTIONS (2)
  - DECREASED APPETITE [None]
  - ABDOMINAL DISCOMFORT [None]
